FAERS Safety Report 25947177 (Version 1)
Quarter: 2025Q4

REPORT INFORMATION
  Report Type: Spontaneous
  Country: EU (occurrence: EU)
  Receive Date: 20251022
  Receipt Date: 20251022
  Transmission Date: 20260118
  Serious: Yes (Hospitalization)
  Sender: RANBAXY
  Company Number: EU-SEMPA-2025-004747

PATIENT
  Age: 37 Year
  Sex: Male

DRUGS (4)
  1. OLANZAPINE [Suspect]
     Active Substance: OLANZAPINE
     Indication: Product used for unknown indication
     Dosage: 45 MILLIGRAM, IN TOTAL, SUSPECTED DOSE IN TOTAL
     Route: 065
     Dates: start: 20250603
  2. AKINETON [Suspect]
     Active Substance: BIPERIDEN HYDROCHLORIDE
     Indication: Product used for unknown indication
     Dosage: 2 MILLIGRAM, UNK, SUSPECTED DOSE IN TOTAL
     Route: 065
     Dates: start: 20250603
  3. LAMOTRIGINE [Suspect]
     Active Substance: LAMOTRIGINE
     Indication: Product used for unknown indication
     Dosage: 600 MILLIGRAM, UNK, SUSPECTED DOSE IN TOTAL
     Route: 065
     Dates: start: 20250603
  4. LISDEXAMFETAMINE DIMESYLATE [Suspect]
     Active Substance: LISDEXAMFETAMINE DIMESYLATE
     Indication: Product used for unknown indication
     Dosage: 240 MILLIGRAM, IN TOTAL, SUSPECTED DOSE IN TOTAL
     Route: 065
     Dates: start: 20250603

REACTIONS (3)
  - Intentional overdose [Recovering/Resolving]
  - Toxicity to various agents [Recovering/Resolving]
  - Suicide attempt [Recovering/Resolving]

NARRATIVE: CASE EVENT DATE: 20250603
